FAERS Safety Report 5236714-3 (Version None)
Quarter: 2007Q2

REPORT INFORMATION
  Report Type: 
  Country: None (occurrence: None)
  Receive Date: 20070209
  Receipt Date: 20070126
  Transmission Date: 20071010
  Serious: Yes (Life-Threatening)
  Sender: FDA-Public Use
  Company Number: 070118-0000070

PATIENT
  Age: 43 Day
  Sex: Male

DRUGS (10)
  1. INDOMETHACIN SODIUM [Suspect]
     Indication: PATENT DUCTUS ARTERIOSUS
     Dosage: 1.2 MG/KG; QD; IV
     Route: 042
     Dates: start: 20021022, end: 20021210
  2. DECADRON [Concomitant]
  3. ALBUMIN (HUMAN) [Concomitant]
  4. AMIKACIN SULFATE [Concomitant]
  5. AMPICILLIN [Concomitant]
  6. BETAMIPRON + PANIPENEM [Concomitant]
  7. CARTEOLOL HYDROCHLORIDE [Concomitant]
  8. CEFTAZIDIME [Concomitant]
  9. DOBUTAMINE HYDROCHLORIDE + DOPAMINE HYDROCHLORIDE [Concomitant]
  10. VANCOMYCIN HYDROCHLORIDE [Concomitant]

REACTIONS (4)
  - BRONCHOPULMONARY DYSPLASIA [None]
  - DUODENAL PERFORATION [None]
  - NEONATAL DISORDER [None]
  - SEPSIS NEONATAL [None]
